FAERS Safety Report 4414904-7 (Version None)
Quarter: 2004Q3

REPORT INFORMATION
  Report Type: 
  Country: None (occurrence: None)
  Receive Date: 20040804
  Receipt Date: 20040726
  Transmission Date: 20050211
  Serious: Yes (Other)
  Sender: FDA-Public Use
  Company Number: 200412444JP

PATIENT
  Sex: Female

DRUGS (1)
  1. ALLEGRA [Suspect]

REACTIONS (2)
  - ABORTION [None]
  - DRUG EXPOSURE DURING PREGNANCY [None]
